FAERS Safety Report 7600447-6 (Version None)
Quarter: 2011Q3

REPORT INFORMATION
  Report Type: 
  Country: None (occurrence: None)
  Receive Date: 20110711
  Receipt Date: 20110627
  Transmission Date: 20111222
  Serious: Yes (Hospitalization, Other)
  Sender: FDA-Public Use
  Company Number: PHHY2011BR27195

PATIENT
  Sex: Female

DRUGS (3)
  1. EXFORGE [Suspect]
     Dosage: 1 DF, UNK
  2. EXFORGE [Suspect]
     Dosage: 1 DF, UNK
  3. EXFORGE [Suspect]
     Dosage: 2 DF, 320 MG VALSARTAN AND 10 MG AMLODIPINE

REACTIONS (5)
  - OEDEMA PERIPHERAL [None]
  - GAIT DISTURBANCE [None]
  - BLOOD PRESSURE INCREASED [None]
  - DIZZINESS [None]
  - FEELING ABNORMAL [None]
